FAERS Safety Report 6693057-9 (Version None)
Quarter: 2010Q2

REPORT INFORMATION
  Report Type: 
  Country: None (occurrence: None)
  Receive Date: 20100422
  Receipt Date: 20100421
  Transmission Date: 20101027
  Serious: Yes (Life-Threatening, Other)
  Sender: FDA-Public Use
  Company Number: GB-ROXANE LABORATORIES, INC.-2010-RO-00451RO

PATIENT
  Age: 77 Year
  Sex: Female

DRUGS (11)
  1. FUROSEMIDE [Suspect]
     Indication: OEDEMA PERIPHERAL
     Route: 048
  2. FUROSEMIDE [Suspect]
     Route: 048
  3. RAMIPRIL [Suspect]
     Indication: HYPERTENSION
  4. ATENOLOL [Suspect]
     Indication: HYPERTENSION
  5. BENDROFLUMETHIAZIDE [Suspect]
     Indication: HYPERTENSION
  6. VANCOMYCIN [Suspect]
     Indication: EVIDENCE BASED TREATMENT
     Dosage: 2 G
     Route: 042
  7. POTASSIUM [Suspect]
     Indication: HYPOKALAEMIA
     Route: 048
  8. POTASSIUM [Suspect]
     Route: 042
  9. SPIRONOLACTONE [Suspect]
     Indication: DIURETIC THERAPY
  10. AMILORIDE HYDROCHLORIDE [Suspect]
     Indication: POLYURIA
  11. OPIOIDS [Concomitant]
     Indication: PAIN

REACTIONS (7)
  - CARDIAC ARREST [None]
  - HYPERKALAEMIA [None]
  - HYPOKALAEMIA [None]
  - IMPAIRED HEALING [None]
  - OEDEMA PERIPHERAL [None]
  - PLEURAL EFFUSION [None]
  - VENTRICULAR TACHYCARDIA [None]
